FAERS Safety Report 7151216-5 (Version None)
Quarter: 2010Q4

REPORT INFORMATION
  Report Type: 
  Country: None (occurrence: None)
  Receive Date: 20101124
  Receipt Date: 20101115
  Transmission Date: 20110411
  Serious: Yes (Other)
  Sender: FDA-Public Use
  Company Number: 2010US004728

PATIENT
  Age: 32 Year
  Sex: Female

DRUGS (5)
  1. AMBISOME [Suspect]
     Indication: ANTIFUNGAL TREATMENT
  2. AMBISOME [Suspect]
     Indication: SINUSITIS FUNGAL
  3. ANTIBIOTICS [Concomitant]
     Indication: HELMINTHIC INFECTION
  4. ANTIBIOTICS [Concomitant]
     Indication: LOWER RESPIRATORY TRACT INFECTION FUNGAL
  5. IMIPENEM (IMIPENEM) [Concomitant]

REACTIONS (9)
  - BLOOD ELECTROLYTES ABNORMAL [None]
  - CHILLS [None]
  - DRUG EXPOSURE DURING PREGNANCY [None]
  - FACIAL PAIN [None]
  - HELMINTHIC INFECTION [None]
  - LOWER RESPIRATORY TRACT INFECTION FUNGAL [None]
  - SINUSITIS FUNGAL [None]
  - STILLBIRTH [None]
  - SWELLING FACE [None]
